FAERS Safety Report 14739225 (Version 2)
Quarter: 2019Q2

REPORT INFORMATION
  Report Type: Spontaneous
  Country: US (occurrence: US)
  Receive Date: 20180410
  Receipt Date: 20190619
  Transmission Date: 20190711
  Serious: Yes (Other)
  Sender: FDA-Public Use
  Company Number: US-TAKEDA-2018TUS008933

PATIENT

DRUGS (57)
  1. CLARITIN [Concomitant]
     Active Substance: LORATADINE
     Dosage: UNK
  2. COZAAR [Concomitant]
     Active Substance: LOSARTAN POTASSIUM
     Dosage: UNK
  3. COZAAR [Concomitant]
     Active Substance: LOSARTAN POTASSIUM
     Dosage: UNK
  4. NORVASC [Concomitant]
     Active Substance: AMLODIPINE BESYLATE
     Dosage: UNK
  5. COREG [Concomitant]
     Active Substance: CARVEDILOL
     Dosage: UNK
  6. PROSCAR [Concomitant]
     Active Substance: FINASTERIDE
     Dosage: UNK
  7. TYLENOL [Concomitant]
     Active Substance: ACETAMINOPHEN
     Dosage: UNK
  8. TYLENOL [Concomitant]
     Active Substance: ACETAMINOPHEN
     Dosage: UNK
  9. CARVEDILOL. [Concomitant]
     Active Substance: CARVEDILOL
     Indication: BLOOD PRESSURE ABNORMAL
     Dosage: UNK
     Dates: start: 2014, end: 2018
  10. PREVACID [Suspect]
     Active Substance: LANSOPRAZOLE
     Indication: PRODUCT USED FOR UNKNOWN INDICATION
     Dosage: UNK
     Route: 048
     Dates: start: 199901, end: 201606
  11. PREVACID 24 HR [Suspect]
     Active Substance: LANSOPRAZOLE
     Indication: PRODUCT USED FOR UNKNOWN INDICATION
     Dosage: UNK
     Route: 048
     Dates: start: 199901, end: 201606
  12. PREVACID 24 HR [Suspect]
     Active Substance: LANSOPRAZOLE
     Dosage: UNK
     Route: 048
     Dates: start: 200001, end: 201712
  13. CARDURA [Concomitant]
     Active Substance: DOXAZOSIN MESYLATE
     Dosage: UNK
  14. ZESTRIL [Concomitant]
     Active Substance: LISINOPRIL
     Dosage: UNK
  15. CLARITIN [Concomitant]
     Active Substance: LORATADINE
     Dosage: UNK
  16. COZAAR [Concomitant]
     Active Substance: LOSARTAN POTASSIUM
     Dosage: UNK
  17. FINASTERIDE. [Concomitant]
     Active Substance: FINASTERIDE
     Indication: PROSTATIC DISORDER
     Dosage: UNK
     Dates: start: 2014, end: 2018
  18. PREVACID 24 HR [Suspect]
     Active Substance: LANSOPRAZOLE
     Dosage: 15 MILLIGRAM, QD
     Route: 048
     Dates: start: 2009, end: 2014
  19. CARDURA [Concomitant]
     Active Substance: DOXAZOSIN MESYLATE
     Dosage: UNK
  20. ZESTRIL [Concomitant]
     Active Substance: LISINOPRIL
     Dosage: UNK
  21. ZESTRIL [Concomitant]
     Active Substance: LISINOPRIL
     Dosage: UNK
  22. COREG [Concomitant]
     Active Substance: CARVEDILOL
     Dosage: UNK
  23. PROSCAR [Concomitant]
     Active Substance: FINASTERIDE
     Dosage: UNK
  24. ANASPAZ [Concomitant]
     Active Substance: HYOSCYAMINE SULFATE
     Dosage: UNK
  25. ZOCOR [Concomitant]
     Active Substance: SIMVASTATIN
     Dosage: UNK
  26. DEXILANT [Suspect]
     Active Substance: DEXLANSOPRAZOLE
     Indication: PRODUCT USED FOR UNKNOWN INDICATION
     Dosage: UNK
     Route: 048
     Dates: start: 199901, end: 201606
  27. COZAAR [Concomitant]
     Active Substance: LOSARTAN POTASSIUM
     Dosage: UNK
  28. ANASPAZ [Concomitant]
     Active Substance: HYOSCYAMINE SULFATE
     Dosage: UNK
  29. PRILOSEC [Suspect]
     Active Substance: OMEPRAZOLE MAGNESIUM
     Indication: PRODUCT USED FOR UNKNOWN INDICATION
     Dosage: UNK
     Route: 048
     Dates: start: 199901, end: 201606
  30. NEXIUM 24HR [Suspect]
     Active Substance: ESOMEPRAZOLE MAGNESIUM
     Indication: PRODUCT USED FOR UNKNOWN INDICATION
     Dosage: UNK
     Route: 048
     Dates: end: 201606
  31. CARDURA [Concomitant]
     Active Substance: DOXAZOSIN MESYLATE
     Dosage: UNK
  32. ZESTRIL [Concomitant]
     Active Substance: LISINOPRIL
     Dosage: UNK
  33. NORVASC [Concomitant]
     Active Substance: AMLODIPINE BESYLATE
     Dosage: UNK
  34. PROSCAR [Concomitant]
     Active Substance: FINASTERIDE
     Dosage: UNK
  35. TYLENOL [Concomitant]
     Active Substance: ACETAMINOPHEN
     Dosage: UNK
  36. DOXAZOSIN [Concomitant]
     Active Substance: DOXAZOSIN\DOXAZOSIN MESYLATE
     Indication: BLOOD PRESSURE ABNORMAL
     Dosage: UNK
     Dates: start: 2014, end: 2018
  37. PEPCID AC [Concomitant]
     Active Substance: FAMOTIDINE
     Dosage: UNK
     Dates: start: 1990, end: 2008
  38. PREVACID [Suspect]
     Active Substance: LANSOPRAZOLE
     Dosage: UNK
     Route: 065
     Dates: start: 200001, end: 201712
  39. CLARITIN [Concomitant]
     Active Substance: LORATADINE
     Dosage: UNK
  40. CLARITIN [Concomitant]
     Active Substance: LORATADINE
     Dosage: UNK
  41. ZOCOR [Concomitant]
     Active Substance: SIMVASTATIN
     Dosage: UNK
  42. HYOSCYAMINE. [Concomitant]
     Active Substance: HYOSCYAMINE
     Indication: BLADDER SPASM
     Dosage: UNK
     Dates: start: 2014, end: 2018
  43. NEXIUM [Suspect]
     Active Substance: ESOMEPRAZOLE MAGNESIUM
     Indication: PRODUCT USED FOR UNKNOWN INDICATION
     Dosage: UNK
     Route: 048
     Dates: start: 199901, end: 201606
  44. NORVASC [Concomitant]
     Active Substance: AMLODIPINE BESYLATE
     Dosage: UNK
  45. COREG [Concomitant]
     Active Substance: CARVEDILOL
     Dosage: UNK
  46. PROSCAR [Concomitant]
     Active Substance: FINASTERIDE
     Dosage: UNK
  47. ANASPAZ [Concomitant]
     Active Substance: HYOSCYAMINE SULFATE
     Dosage: UNK
  48. ZOCOR [Concomitant]
     Active Substance: SIMVASTATIN
     Dosage: UNK
  49. TYLENOL [Concomitant]
     Active Substance: ACETAMINOPHEN
     Dosage: UNK
  50. AMLODIPINE [Concomitant]
     Active Substance: AMLODIPINE BESYLATE
     Indication: BLOOD PRESSURE ABNORMAL
     Dosage: UNK
     Dates: start: 2014, end: 2018
  51. PROTONIX [Suspect]
     Active Substance: PANTOPRAZOLE SODIUM
     Indication: PRODUCT USED FOR UNKNOWN INDICATION
     Dosage: UNK
     Route: 048
     Dates: start: 199901, end: 201606
  52. PROTONIX [Suspect]
     Active Substance: PANTOPRAZOLE SODIUM
     Dosage: UNK
     Route: 048
     Dates: start: 200001, end: 201712
  53. CARDURA [Concomitant]
     Active Substance: DOXAZOSIN MESYLATE
     Dosage: UNK
  54. NORVASC [Concomitant]
     Active Substance: AMLODIPINE BESYLATE
     Dosage: UNK
  55. COREG [Concomitant]
     Active Substance: CARVEDILOL
     Dosage: UNK
  56. ANASPAZ [Concomitant]
     Active Substance: HYOSCYAMINE SULFATE
     Dosage: UNK
  57. ZOCOR [Concomitant]
     Active Substance: SIMVASTATIN
     Dosage: UNK

REACTIONS (4)
  - Acute kidney injury [Unknown]
  - Renal failure [Unknown]
  - Chronic kidney disease [Not Recovered/Not Resolved]
  - Nephrogenic anaemia [Unknown]

NARRATIVE: CASE EVENT DATE: 201404
